FAERS Safety Report 7756427-3 (Version None)
Quarter: 2011Q3

REPORT INFORMATION
  Report Type: 
  Country: None (occurrence: None)
  Receive Date: 20110901
  Receipt Date: 20110818
  Transmission Date: 20111222
  Serious: Yes (Hospitalization, Other)
  Sender: FDA-Public Use
  Company Number: 2011PROUSA00619

PATIENT
  Age: 78 Year
  Sex: Male
  Weight: 81.8 kg

DRUGS (8)
  1. DOXYCYCLINE [Concomitant]
  2. VICODIN [Suspect]
  3. XGEVA (DENOSUMAB) [Suspect]
  4. PROVENGE [Suspect]
     Dosage: 250 ML, SINGLE, INTRAVENOUS
     Route: 042
     Dates: start: 20110519, end: 20110519
  5. LISINOPRIL + HYDROCLOROTIAZIDA [Concomitant]
  6. MULTIVITAMINS PLUS IRON (FERROUS SULFATE, VITAMINS NOS) [Concomitant]
  7. PROVENGE [Suspect]
     Indication: PROSTATE CANCER METASTATIC
     Dosage: 250 ML, SINGLE, INTRAVENOUS
     Route: 042
     Dates: start: 20110331, end: 20110331
  8. PROVENGE [Suspect]
     Dosage: 250 ML, SINGLE, INTRAVENOUS
     Route: 042
     Dates: start: 20110603, end: 20110603

REACTIONS (11)
  - URINARY RETENTION [None]
  - OTITIS MEDIA [None]
  - PROSTATE CANCER [None]
  - BACTERAEMIA [None]
  - HYPOTENSION [None]
  - ASTHENIA [None]
  - DISEASE PROGRESSION [None]
  - DIARRHOEA [None]
  - DECREASED APPETITE [None]
  - HYPERTENSION [None]
  - CONSTIPATION [None]
